FAERS Safety Report 12192015 (Version 1)
Quarter: 2016Q1

REPORT INFORMATION
  Report Type: Spontaneous
  Country: US (occurrence: None)
  Receive Date: 20160318
  Receipt Date: 20160318
  Transmission Date: 20160526
  Serious: Yes (Death, Life-Threatening, Other)
  Sender: FDA-Public Use
  Company Number: US-MDT-ADR-2016-00387

PATIENT
  Age: 52 Year
  Sex: Male

DRUGS (1)
  1. LIORESAL [Suspect]
     Active Substance: BACLOFEN
     Indication: MUSCLE SPASTICITY
     Dosage: 178.09 MCG/DAY

REACTIONS (31)
  - Carbon dioxide increased [None]
  - Ventricular fibrillation [None]
  - Pulmonary embolism [None]
  - Anal sphincter atony [None]
  - Pupil fixed [None]
  - Oxygen saturation decreased [None]
  - Hyperkalaemia [None]
  - Acidosis [None]
  - Hypoxia [None]
  - Pneumothorax [None]
  - Respiratory failure [None]
  - Blood glucose decreased [None]
  - Cardiac arrest [None]
  - Hypothermia [None]
  - Hypovolaemia [None]
  - Emotional distress [None]
  - Respiratory arrest [None]
  - Malaise [None]
  - Alcohol poisoning [None]
  - Body temperature decreased [None]
  - Pulse absent [None]
  - Pulmonary oedema [None]
  - Unresponsive to stimuli [None]
  - Coma scale abnormal [None]
  - Pulse abnormal [None]
  - Blood potassium abnormal [None]
  - Blood bicarbonate decreased [None]
  - Feeling cold [None]
  - Myocardial infarction [None]
  - Haemorrhage [None]
  - Circulatory collapse [None]
